FAERS Safety Report 22288375 (Version 1)
Quarter: 2023Q2

REPORT INFORMATION
  Report Type: Spontaneous
  Country: CA (occurrence: CA)
  Receive Date: 20230505
  Receipt Date: 20230505
  Transmission Date: 20230722
  Serious: Yes (Hospitalization, Other)
  Sender: FDA-Public Use
  Company Number: CA-TEVA-2023-CA-2882808

PATIENT
  Age: 45 Year
  Sex: Female

DRUGS (7)
  1. AMIODARONE [Suspect]
     Active Substance: AMIODARONE
     Indication: Ventricular tachycardia
     Route: 065
  2. ASPIRIN [Suspect]
     Active Substance: ASPIRIN
     Indication: Ventricular tachycardia
     Route: 065
  3. METOPROLOL [Suspect]
     Active Substance: METOPROLOL
     Indication: Ventricular tachycardia
     Route: 065
  4. PREDNISONE [Suspect]
     Active Substance: PREDNISONE
     Indication: Ventricular tachycardia
     Route: 065
  5. RAMIPRIL [Suspect]
     Active Substance: RAMIPRIL
     Indication: Ventricular tachycardia
     Route: 065
  6. FONDAPARINUX SODIUM [Suspect]
     Active Substance: FONDAPARINUX SODIUM
     Indication: Ventricular tachycardia
     Route: 065
  7. TICAGRELOR [Suspect]
     Active Substance: TICAGRELOR
     Indication: Ventricular tachycardia
     Route: 065

REACTIONS (1)
  - Hypersensitivity myocarditis [Recovered/Resolved]
